FAERS Safety Report 16817585 (Version 1)
Quarter: 2019Q3

REPORT INFORMATION
  Report Type: Spontaneous
  Country: US (occurrence: US)
  Receive Date: 20190917
  Receipt Date: 20190917
  Transmission Date: 20191005
  Serious: Yes (Other)
  Sender: FDA-Public Use
  Company Number: US-PFIZER INC-2019397219

PATIENT
  Age: 47 Year
  Sex: Male
  Weight: 72.57 kg

DRUGS (1)
  1. VIAGRA [Suspect]
     Active Substance: SILDENAFIL CITRATE
     Dosage: 400 MG, UNK
     Route: 048

REACTIONS (2)
  - Accidental overdose [Unknown]
  - Erection increased [Unknown]
